FAERS Safety Report 20508223 (Version 2)
Quarter: 2022Q1

REPORT INFORMATION
  Report Type: Report from Study
  Country: US (occurrence: US)
  Receive Date: 20220223
  Receipt Date: 20220317
  Transmission Date: 20220423
  Serious: No
  Sender: FDA-Public Use
  Company Number: US-GLAXOSMITHKLINE-US2021AMR218137

PATIENT
  Age: 58 Year
  Sex: Female

DRUGS (1)
  1. BELANTAMAB MAFODOTIN [Suspect]
     Active Substance: BELANTAMAB MAFODOTIN
     Indication: Plasma cell myeloma
     Dosage: 2.5 MG/KG, Z, Q21D
     Dates: start: 20210923

REACTIONS (12)
  - Visual acuity reduced [Unknown]
  - Keratopathy [Unknown]
  - Condition aggravated [Unknown]
  - Photophobia [Not Recovered/Not Resolved]
  - Dry eye [Not Recovered/Not Resolved]
  - Lacrimation increased [Not Recovered/Not Resolved]
  - Eye pruritus [Not Recovered/Not Resolved]
  - Vision blurred [Not Recovered/Not Resolved]
  - Eye disorder [Not Recovered/Not Resolved]
  - Punctal plug insertion [Unknown]
  - Corneal disorder [Unknown]
  - Foreign body sensation in eyes [Unknown]

NARRATIVE: CASE EVENT DATE: 20211011
